FAERS Safety Report 23924761 (Version 1)
Quarter: 2024Q2

REPORT INFORMATION
  Report Type: Spontaneous
  Country: US (occurrence: None)
  Receive Date: 20240530
  Receipt Date: 20240530
  Transmission Date: 20240716
  Serious: Yes (Hospitalization)
  Sender: FDA-Public Use
  Company Number: None

PATIENT
  Age: 61 Year
  Sex: Male
  Weight: 78.7 kg

DRUGS (13)
  1. EMPAGLIFLOZIN [Suspect]
     Active Substance: EMPAGLIFLOZIN
     Indication: Heart failure with reduced ejection fraction
     Dosage: FREQUENCY : DAILY;?
     Route: 048
     Dates: start: 20240428, end: 20240512
  2. Aspirin 81 mg once daily [Concomitant]
  3. Atorvastatin 80 mg once daily [Concomitant]
  4. Carvedilol 25 mg twice daily [Concomitant]
  5. Apixaban 5 mg twice daily [Concomitant]
  6. Ferrous sulfate 325 mg once daily [Concomitant]
  7. Gabapentin 100 mg three times daily [Concomitant]
  8. Hydralazine 25 mg three times daily [Concomitant]
  9. Insulin aspart 7 units three times daily [Concomitant]
  10. Insulin glargine 22 units once daily at bedtime [Concomitant]
  11. Furosemide 40 mg once daily [Concomitant]
  12. Polyethylene glycol 3350 17 grams twice daily [Concomitant]
  13. Senna S 1 tablet every 12 hours [Concomitant]

REACTIONS (5)
  - Scrotal cellulitis [None]
  - Fournier^s gangrene [None]
  - White blood cell count increased [None]
  - Acute kidney injury [None]
  - Acute kidney injury [None]

NARRATIVE: CASE EVENT DATE: 20240513
